FAERS Safety Report 25040531 (Version 6)
Quarter: 2025Q3

REPORT INFORMATION
  Report Type: Report from Study
  Country: US (occurrence: US)
  Receive Date: 20250305
  Receipt Date: 20250901
  Transmission Date: 20251021
  Serious: Yes (Hospitalization, Other)
  Sender: UCB
  Company Number: US-UCBSA-2025011783

PATIENT
  Sex: Male
  Weight: 35.374 kg

DRUGS (13)
  1. FINTEPLA [Suspect]
     Active Substance: FENFLURAMINE
     Indication: Lennox-Gastaut syndrome
  2. FINTEPLA [Suspect]
     Active Substance: FENFLURAMINE
     Dosage: 2 MILLILITER, 2X/DAY (BID)
     Route: 048
     Dates: start: 20250213
  3. FINTEPLA [Suspect]
     Active Substance: FENFLURAMINE
     Dosage: 2.27 MILLILITER, 2X/DAY (BID)
     Route: 048
     Dates: start: 20250418
  4. FINTEPLA [Suspect]
     Active Substance: FENFLURAMINE
     Dosage: 2 MILLILITER, 2X/DAY (BID)
     Dates: end: 2025
  5. KEPPRA [Suspect]
     Active Substance: LEVETIRACETAM
     Indication: Seizure
     Dosage: 9 MILLILITER, 2X/DAY (BID)
     Dates: start: 20241114
  6. KEPPRA [Suspect]
     Active Substance: LEVETIRACETAM
     Indication: Lennox-Gastaut syndrome
     Dosage: 9 MILLILITER, 2X/DAY (BID)
     Dates: start: 20250213
  7. KEPPRA [Suspect]
     Active Substance: LEVETIRACETAM
     Indication: Off label use
  8. CLONAZEPAM [Concomitant]
     Active Substance: CLONAZEPAM
     Indication: Product used for unknown indication
     Route: 048
     Dates: start: 20241114
  9. CLONAZEPAM [Concomitant]
     Active Substance: CLONAZEPAM
  10. GABAPENTIN [Concomitant]
     Active Substance: GABAPENTIN
     Indication: Behaviour disorder
     Dosage: 2 MILLILITER, 2X/DAY (BID)
     Route: 048
     Dates: start: 20241224
  11. VALTOCO [Concomitant]
     Active Substance: DIAZEPAM
     Indication: Seizure
     Route: 045
     Dates: start: 20241114
  12. IBUPROFEN [Concomitant]
     Active Substance: IBUPROFEN
     Indication: Product used for unknown indication
     Route: 048
  13. MIRALAX [Concomitant]
     Active Substance: POLYETHYLENE GLYCOL 3350
     Indication: Product used for unknown indication
     Route: 048

REACTIONS (11)
  - Seizure [Not Recovered/Not Resolved]
  - Epilepsy [Not Recovered/Not Resolved]
  - Microcephaly [Unknown]
  - Hospitalisation [Not Recovered/Not Resolved]
  - Developmental delay [Unknown]
  - Tachycardia [Unknown]
  - Movement disorder [Not Recovered/Not Resolved]
  - Impulsive behaviour [Unknown]
  - Agitation [Unknown]
  - Therapy interrupted [Unknown]
  - Off label use [Unknown]

NARRATIVE: CASE EVENT DATE: 20240101
